FAERS Safety Report 10253491 (Version 1)
Quarter: 2014Q2

REPORT INFORMATION
  Report Type: Other
  Country: TR (occurrence: TR)
  Receive Date: 20140623
  Receipt Date: 20140623
  Transmission Date: 20141212
  Serious: Yes (Hospitalization)
  Sender: FDA-Public Use
  Company Number: TR-BRISTOL-MYERS SQUIBB COMPANY-21068515

PATIENT
  Age: 57 Year
  Sex: Female

DRUGS (1)
  1. METFORMIN HCL [Suspect]
     Indication: DIABETES MELLITUS

REACTIONS (6)
  - Carpal tunnel syndrome [Unknown]
  - Arthropathy [Unknown]
  - Exostosis [Unknown]
  - Periarthritis [Unknown]
  - Myalgia [Recovered/Resolved]
  - Vitamin D decreased [Unknown]
